FAERS Safety Report 6422902-7 (Version None)
Quarter: 2009Q4

REPORT INFORMATION
  Report Type: 
  Country: None (occurrence: None)
  Receive Date: 20091102
  Receipt Date: 20091028
  Transmission Date: 20100525
  Serious: Yes (Hospitalization)
  Sender: FDA-Public Use
  Company Number: CH-ROCHE-665308

PATIENT
  Age: 43 Year
  Sex: Male
  Weight: 75 kg

DRUGS (6)
  1. ROCEPHIN [Suspect]
     Dosage: RENAL COLIC, UNSPECIFIED
     Route: 041
     Dates: start: 20090715
  2. DAFALGAN [Suspect]
     Indication: RENAL COLIC
     Dosage: INDICATION: UNSPECIFIED RENAL COLIC
     Route: 048
     Dates: start: 20080928, end: 20081001
  3. VOLTAREN [Suspect]
     Indication: RENAL COLIC
     Dosage: DOSAGE REGIMEN: AS NECESSARY INDICATION: UNSPECIFIED RENAL COLIC
     Route: 065
  4. NEXIUM [Suspect]
     Route: 048
  5. MINALGIN [Concomitant]
     Indication: RENAL COLIC
     Dosage: AS NECESSARY
     Dates: start: 20090714
  6. PETHIDINE HYDROCHLORIDE [Concomitant]
     Route: 051

REACTIONS (2)
  - ASCITES [None]
  - HEPATOCELLULAR INJURY [None]
